FAERS Safety Report 25214720 (Version 1)
Quarter: 2025Q2

REPORT INFORMATION
  Report Type: Spontaneous
  Country: US (occurrence: None)
  Receive Date: 20250417
  Receipt Date: 20250417
  Transmission Date: 20250717
  Serious: Yes (Hospitalization)
  Sender: FDA-CTU
  Company Number: None

PATIENT
  Age: 76 Year
  Sex: Male
  Weight: 66 kg

DRUGS (1)
  1. NAPROXEN [Suspect]
     Active Substance: NAPROXEN
     Indication: Pain
     Dosage: FREQUENCY : TWICE A DAY;?
     Route: 048

REACTIONS (8)
  - Tubulointerstitial nephritis [None]
  - Acute kidney injury [None]
  - Hepatic enzyme abnormal [None]
  - Pancreatic enzymes abnormal [None]
  - Rhabdomyolysis [None]
  - Biliary obstruction [None]
  - Pancreatic duct obstruction [None]
  - Renal tubular necrosis [None]

NARRATIVE: CASE EVENT DATE: 20250314
